FAERS Safety Report 4768030-8 (Version None)
Quarter: 2005Q3

REPORT INFORMATION
  Report Type: 
  Country: None (occurrence: None)
  Receive Date: 20050912
  Receipt Date: 20050826
  Transmission Date: 20060218
  Serious: Yes (Hospitalization)
  Sender: FDA-Public Use
  Company Number: 2005BI010889

PATIENT
  Age: 53 Year
  Sex: Female

DRUGS (1)
  1. AVONEX [Suspect]
     Indication: MULTIPLE SCLEROSIS
     Dosage: 30 UG;QW;IM
     Route: 030
     Dates: start: 20010101, end: 20050323

REACTIONS (6)
  - APPENDICITIS PERFORATED [None]
  - FATIGUE [None]
  - IMPAIRED HEALING [None]
  - INCISION SITE COMPLICATION [None]
  - LABORATORY TEST ABNORMAL [None]
  - THROMBOSIS [None]
